FAERS Safety Report 6518206-4 (Version None)
Quarter: 2009Q4

REPORT INFORMATION
  Report Type: 
  Country: None (occurrence: None)
  Receive Date: 20091224
  Receipt Date: 20091210
  Transmission Date: 20100525
  Serious: Yes (Other)
  Sender: FDA-Public Use
  Company Number: SK-PFIZER INC-2009310884

PATIENT
  Sex: Male

DRUGS (3)
  1. LYRICA [Suspect]
     Dosage: UNK
     Dates: start: 20091112, end: 20091113
  2. TIMONIL [Concomitant]
     Dosage: 150 MG, 2X/DAY
  3. CARBAMAZEPINE EXTENDED-RELEASE [Concomitant]
     Dosage: 300 MG, 2X/DAY

REACTIONS (5)
  - ABDOMINAL PAIN UPPER [None]
  - CHEST PAIN [None]
  - DERMATITIS ALLERGIC [None]
  - FEELING HOT [None]
  - HYPERHIDROSIS [None]
